FAERS Safety Report 10643025 (Version 3)
Quarter: 2022Q1

REPORT INFORMATION
  Report Type: Report from Study
  Country: US (occurrence: US)
  Receive Date: 20141210
  Receipt Date: 20220211
  Transmission Date: 20220423
  Serious: Yes (Disabling)
  Sender: FDA-Public Use
  Company Number: US-SA-2014SA167926

PATIENT
  Age: 45 Year
  Sex: Male

DRUGS (3)
  1. TERIFLUNOMIDE [Suspect]
     Active Substance: TERIFLUNOMIDE
     Indication: Multiple sclerosis
     Dosage: 14 MG,QD
     Route: 048
     Dates: start: 20140125
  2. TERIFLUNOMIDE [Suspect]
     Active Substance: TERIFLUNOMIDE
     Dosage: UNK
  3. OCREVUS [Concomitant]
     Active Substance: OCRELIZUMAB

REACTIONS (6)
  - Unevaluable event [Unknown]
  - Coordination abnormal [Unknown]
  - Memory impairment [Unknown]
  - Anxiety [Unknown]
  - Change in sustained attention [Unknown]
  - Loss of personal independence in daily activities [Unknown]
